FAERS Safety Report 14491827 (Version 2)
Quarter: 2018Q1

REPORT INFORMATION
  Report Type: Spontaneous
  Country: US (occurrence: US)
  Receive Date: 20180206
  Receipt Date: 20180208
  Transmission Date: 20180509
  Serious: Yes (Other)
  Sender: FDA-Public Use
  Company Number: US-JNJFOC-20180133247

PATIENT
  Sex: Female

DRUGS (1)
  1. NEUTROGENA OIL FREE ACNE WASH PINK GRAPEFRUIT FACIAL CLEANSER [Suspect]
     Active Substance: SALICYLIC ACID
     Indication: ACCIDENTAL EXPOSURE TO PRODUCT
     Route: 047

REACTIONS (4)
  - Lacrimation increased [None]
  - Accidental exposure to product [Unknown]
  - Accidental exposure to product [None]
  - Chemical burns of eye [Unknown]
